FAERS Safety Report 7416349-4 (Version None)
Quarter: 2011Q2

REPORT INFORMATION
  Report Type: 
  Country: None (occurrence: None)
  Receive Date: 20110414
  Receipt Date: 20110411
  Transmission Date: 20111010
  Serious: Yes (Hospitalization, Other)
  Sender: FDA-Public Use
  Company Number: DE-ABBOTT-11P-062-0712000-00

PATIENT
  Sex: Male

DRUGS (4)
  1. BUDENOFALK [Concomitant]
     Indication: PRODUCT USED FOR UNKNOWN INDICATION
  2. TRAMAL [Concomitant]
     Indication: PRODUCT USED FOR UNKNOWN INDICATION
  3. HUMIRA [Suspect]
     Indication: CROHN'S DISEASE
     Route: 058
     Dates: start: 20110208
  4. LOPERAMIDE [Concomitant]
     Indication: PRODUCT USED FOR UNKNOWN INDICATION

REACTIONS (8)
  - DIZZINESS [None]
  - MUSCULOSKELETAL STIFFNESS [None]
  - HAEMATOCHEZIA [None]
  - MUSCULAR WEAKNESS [None]
  - NAUSEA [None]
  - INTESTINAL HAEMORRHAGE [None]
  - DIARRHOEA [None]
  - WEIGHT DECREASED [None]
